FAERS Safety Report 13160198 (Version 1)
Quarter: 2017Q1

REPORT INFORMATION
  Report Type: Report from Study
  Country: US (occurrence: US)
  Receive Date: 20170127
  Receipt Date: 20170127
  Transmission Date: 20170428
  Serious: Yes (Hospitalization)
  Sender: FDA-Public Use
  Company Number: US-ACTELION-A-NJ2015-119020

PATIENT
  Age: 78 Year
  Sex: Female

DRUGS (46)
  1. PROZAC [Concomitant]
     Active Substance: FLUOXETINE HYDROCHLORIDE
     Dosage: 10 UNK, UNK
     Route: 048
  2. FOSAMAX [Concomitant]
     Active Substance: ALENDRONATE SODIUM
     Dosage: 70 MG, Q1WEEK
     Route: 048
  3. CAPOTEN [Concomitant]
     Active Substance: CAPTOPRIL
     Dosage: 6.25 MG, QD
     Route: 048
  4. NOVOLIN R [Concomitant]
     Active Substance: INSULIN HUMAN
     Dosage: 100 U/ML SOLUTION, TO SCALE
     Route: 051
  5. BUMEX [Concomitant]
     Active Substance: BUMETANIDE
     Dosage: 0.5 MG, PRN
     Route: 048
  6. IMODIUM [Concomitant]
     Active Substance: LOPERAMIDE HYDROCHLORIDE
     Dosage: 2 MG, PRN
     Route: 048
  7. ALLOPURINOL. [Concomitant]
     Active Substance: ALLOPURINOL
     Dosage: 100 MG, QD
     Route: 048
  8. IRON [Concomitant]
     Active Substance: IRON
     Dosage: 325 MG, QD
     Route: 048
  9. CAPOTEN [Concomitant]
     Active Substance: CAPTOPRIL
     Dosage: UNK, BID
     Route: 048
  10. ULORIC [Concomitant]
     Active Substance: FEBUXOSTAT
     Dosage: 40 MG, QD
     Route: 048
  11. PREDNISONE. [Concomitant]
     Active Substance: PREDNISONE
     Dosage: 20 MG, QD FOR 30 DAYS
     Route: 048
     Dates: start: 20120731
  12. NORCO [Concomitant]
     Active Substance: ACETAMINOPHEN\HYDROCODONE BITARTRATE
     Dosage: 7.5-325 MG, PRN
     Route: 048
     Dates: start: 20130109
  13. NOVOLOG [Concomitant]
     Active Substance: INSULIN ASPART
     Dosage: 100 U/ML, UNK
     Route: 058
  14. LANTUS [Concomitant]
     Active Substance: INSULIN GLARGINE
     Dosage: 100 U/ML, QPM, 3 UNITS IF BS{100
     Route: 058
  15. PRESERVISION AREDS [Concomitant]
     Active Substance: MINERALS\VITAMINS
     Dosage: UNK, BID
     Route: 048
  16. OSCAL D [Concomitant]
     Active Substance: CALCIUM CARBONATE\CHOLECALCIFEROL
     Dosage: 500-200 MG-UNIT, QD
     Route: 048
  17. MAGNESIUM [Concomitant]
     Active Substance: MAGNESIUM
     Dosage: 400 MG, QD
     Route: 048
  18. PREDNISONE. [Concomitant]
     Active Substance: PREDNISONE
     Dosage: 5 MG, QD FOR 30 DAYS
     Route: 048
     Dates: start: 20141103
  19. METOPROLOL. [Concomitant]
     Active Substance: METOPROLOL
  20. NEURONTIN [Concomitant]
     Active Substance: GABAPENTIN
     Dosage: 100 MG, QPM
  21. PROZAC [Concomitant]
     Active Substance: FLUOXETINE HYDROCHLORIDE
     Dosage: 20 MG, QD
     Route: 048
  22. PREDNISONE. [Concomitant]
     Active Substance: PREDNISONE
     Dosage: 10 MG, BID
     Route: 048
  23. IBANDRONATE [Concomitant]
     Active Substance: IBANDRONATE SODIUM
  24. GEMFIBROZIL. [Concomitant]
     Active Substance: GEMFIBROZIL
  25. CIPROFLOXACIN. [Concomitant]
     Active Substance: CIPROFLOXACIN
  26. CALCIUM CARBONATE. [Concomitant]
     Active Substance: CALCIUM CARBONATE
     Dosage: 1500 MG, BID
     Route: 048
  27. NEURONTIN [Concomitant]
     Active Substance: GABAPENTIN
     Dosage: 400 MG, TID
     Route: 048
  28. FLUTICASONE PROPIONATE. [Concomitant]
     Active Substance: FLUTICASONE PROPIONATE
     Dosage: 50 MCG, QD
     Route: 045
  29. NOVOLIN N [Concomitant]
     Active Substance: INSULIN HUMAN
     Dosage: 6 U (100U/ML ) , QD
     Route: 058
  30. LEVOFLOXACIN. [Concomitant]
     Active Substance: LEVOFLOXACIN
  31. VITAMIN D [Concomitant]
     Active Substance: CHOLECALCIFEROL
     Dosage: 2000 U, QD
     Route: 048
  32. LEVOTHYROXINE SODIUM. [Concomitant]
     Active Substance: LEVOTHYROXINE SODIUM
     Dosage: 75 MCG, QD
     Route: 048
  33. FERROUS SULFATE. [Concomitant]
     Active Substance: FERROUS SULFATE
     Dosage: 325 MG, QD
     Route: 048
  34. SPIRIVA [Concomitant]
     Active Substance: TIOTROPIUM BROMIDE MONOHYDRATE
     Dosage: 18 MCG, QD FOR 90 DAYS
     Route: 055
     Dates: start: 20160404
  35. LOPRESSOR [Concomitant]
     Active Substance: METOPROLOL TARTRATE
     Dosage: 50 MG, QD
     Route: 048
     Dates: start: 20100824
  36. LASIX [Concomitant]
     Active Substance: FUROSEMIDE
     Dosage: 20 MG, UNK, TWICE A WEEK
     Route: 048
  37. TRACLEER [Suspect]
     Active Substance: BOSENTAN
     Indication: PULMONARY HYPERTENSION
     Dosage: 125 MG, BID
     Route: 048
     Dates: start: 20040811
  38. REVATIO [Concomitant]
     Active Substance: SILDENAFIL CITRATE
     Dosage: 20 MG, TID
     Route: 048
     Dates: start: 20120315
  39. NEURONTIN [Concomitant]
     Active Substance: GABAPENTIN
     Dosage: 100 MG, BID
     Route: 048
  40. ACIDOPHILUS [Concomitant]
     Active Substance: LACTOBACILLUS ACIDOPHILUS
     Dosage: UNK, BID
     Route: 048
  41. CITRUCEL [Concomitant]
     Active Substance: METHYLCELLULOSE (4000 MPA.S)
     Dosage: UNK, QD
     Route: 048
  42. CRANBERRY. [Concomitant]
     Active Substance: CRANBERRY
     Dosage: UNK, QD
     Route: 048
  43. PRILOSEC [Concomitant]
     Active Substance: OMEPRAZOLE MAGNESIUM
     Dosage: 20 MG, QD
     Route: 048
  44. XOPENEX HFA [Concomitant]
     Active Substance: LEVALBUTEROL TARTRATE
     Dosage: 2 PUFF, PRN
     Route: 055
     Dates: start: 20130109
  45. COLCRYS [Concomitant]
     Active Substance: COLCHICINE
  46. ALPRAZOLAM. [Concomitant]
     Active Substance: ALPRAZOLAM
     Dosage: 0.125 MG, QPM
     Route: 048

REACTIONS (11)
  - Balance disorder [Recovered/Resolved]
  - Urinary tract infection [Unknown]
  - Femur fracture [Recovered/Resolved]
  - Peripheral swelling [Unknown]
  - Rib fracture [Recovered/Resolved]
  - Fall [Unknown]
  - Septic shock [Recovered/Resolved]
  - Dyspnoea exertional [Unknown]
  - Endotracheal intubation [Recovered/Resolved]
  - Mechanical ventilation [Recovered/Resolved]
  - Palpitations [Unknown]

NARRATIVE: CASE EVENT DATE: 20150531
